FAERS Safety Report 8811274 (Version 2)
Quarter: 2012Q4

REPORT INFORMATION
  Report Type: Spontaneous
  Country: US (occurrence: None)
  Receive Date: 20120924
  Receipt Date: 20121009
  Transmission Date: 20130627
  Serious: Yes (Death, Life-Threatening, Other)
  Sender: FDA-Public Use
  Company Number: MC201200523

PATIENT
  Age: 59 Year
  Sex: Female

DRUGS (5)
  1. ANGIOMAX [Suspect]
     Indication: PERCUTANEOUS CORONARY INTERVENTION
     Route: 040
     Dates: start: 20120817
  2. ANGIOMAX [Suspect]
     Indication: PERCUTANEOUS CORONARY INTERVENTION
     Route: 042
     Dates: start: 20120817
  3. WARFARIN (WARFARIN) [Suspect]
     Indication: STROKE
     Route: 048
  4. INTEGRILIN (EPTIFIBATIDE) [Concomitant]
  5. PLAVIX (CLOPIDOGREL SULFATE) [Concomitant]

REACTIONS (2)
  - Pulmonary oedema [None]
  - Pulmonary haemorrhage [None]
